FAERS Safety Report 9373032 (Version 2)
Quarter: 2013Q3

REPORT INFORMATION
  Report Type: Spontaneous
  Country: FR (occurrence: FR)
  Receive Date: 20130627
  Receipt Date: 20130805
  Transmission Date: 20140515
  Serious: Yes (Hospitalization, Other)
  Sender: FDA-Public Use
  Company Number: FR-ELI_LILLY_AND_COMPANY-FR201306008241

PATIENT
  Age: 63 Year
  Sex: Female
  Weight: 65 kg

DRUGS (8)
  1. CYMBALTA [Suspect]
     Indication: MAJOR DEPRESSION
     Dosage: UNK, UNKNOWN
     Route: 048
     Dates: start: 20130404, end: 20130527
  2. SOLIAN [Concomitant]
     Dosage: UNK, UNKNOWN
     Route: 048
     Dates: start: 20130517, end: 20130517
  3. DRIPTANE [Concomitant]
     Indication: NEUROGENIC BLADDER
     Dosage: UNK, UNKNOWN
     Route: 048
     Dates: start: 20120827
  4. LOSARTAN [Concomitant]
     Dosage: UNK, UNKNOWN
     Route: 065
  5. LOXEN [Concomitant]
     Dosage: UNK, UNKNOWN
     Route: 065
  6. NOCTAMIDE [Concomitant]
     Dosage: UNK, UNKNOWN
     Route: 048
     Dates: start: 20130404
  7. SERESTA [Concomitant]
     Dosage: UNK, UNKNOWN
     Route: 048
     Dates: start: 20120907
  8. HALDOL [Concomitant]
     Dosage: 5 MG, QD
     Route: 048
     Dates: start: 20130415, end: 20130430

REACTIONS (1)
  - Hepatocellular injury [Recovered/Resolved]
